FAERS Safety Report 9474102 (Version 2)
Quarter: 2013Q4

REPORT INFORMATION
  Report Type: Spontaneous
  Country: US (occurrence: None)
  Receive Date: 20130820
  Receipt Date: 20131024
  Transmission Date: 20140711
  Serious: Yes (Disabling, Other)
  Sender: FDA-Public Use
  Company Number: ACO_37921_2013

PATIENT
  Sex: Male
  Weight: 79.4 kg

DRUGS (8)
  1. AMPYRA [Suspect]
     Indication: MULTIPLE SCLEROSIS
     Route: 048
  2. BACLOFEN (BACLOFEN) [Concomitant]
  3. OMEPRAZOLE (OMEPRAZOLE) [Concomitant]
  4. PAXIL (PAROXETINE HYDROCHLORIDE) [Concomitant]
  5. TAMSULOSIN (TAMSULOSIN) [Concomitant]
  6. MULTIVITAMIN (VITAMINS NOS) [Concomitant]
  7. CALCIUM (CALCIUM) [Concomitant]
  8. GLUCOSAMINE (GLUCOSAMINE) [Concomitant]

REACTIONS (7)
  - Ocular neoplasm [None]
  - Abasia [None]
  - Road traffic accident [None]
  - Wheelchair user [None]
  - Upper limb fracture [None]
  - Therapeutic response unexpected [None]
  - Blindness unilateral [None]
